FAERS Safety Report 16834575 (Version 2)
Quarter: 2019Q4

REPORT INFORMATION
  Report Type: Spontaneous
  Country: FR (occurrence: FR)
  Receive Date: 20190920
  Receipt Date: 20191122
  Transmission Date: 20200122
  Serious: Yes (Life-Threatening, Other)
  Sender: FDA-Public Use
  Company Number: FR-JNJFOC-20190926586

PATIENT
  Age: 65 Year
  Sex: Female

DRUGS (10)
  1. TICLID [Suspect]
     Active Substance: TICLOPIDINE HYDROCHLORIDE
     Dosage: 1 DF, 1/DAY
     Route: 065
     Dates: start: 1990
  2. ENDOXAN                            /00021101/ [Concomitant]
     Active Substance: CYCLOPHOSPHAMIDE
     Indication: PRODUCT USED FOR UNKNOWN INDICATION
     Route: 048
  3. SECTRAL [Concomitant]
     Active Substance: ACEBUTOLOL HYDROCHLORIDE
     Indication: PRODUCT USED FOR UNKNOWN INDICATION
     Dosage: UNK
  4. TRAMADOL/APAP [Suspect]
     Active Substance: ACETAMINOPHEN\TRAMADOL
     Indication: MYALGIA
     Route: 065
  5. LEVOTHYROX [Suspect]
     Active Substance: LEVOTHYROXINE
     Indication: AUTOIMMUNE THYROIDITIS
     Dosage: UNK
     Route: 065
  6. SPASMAG                            /00869301/ [Concomitant]
     Indication: ANAEMIA
     Route: 065
  7. SINTROM [Interacting]
     Active Substance: ACENOCOUMAROL
     Indication: ANTICOAGULANT THERAPY
     Route: 065
     Dates: start: 1989
  8. PLAQUENIL                          /00072602/ [Concomitant]
     Active Substance: HYDROXYCHLOROQUINE DIPHOSPHATE
     Indication: PRODUCT USED FOR UNKNOWN INDICATION
     Route: 048
  9. TOCO [Concomitant]
     Active Substance: .ALPHA.-TOCOPHEROL ACETATE, D-
     Indication: ARTERIAL DISORDER
     Route: 048
  10. TICLID [Suspect]
     Active Substance: TICLOPIDINE HYDROCHLORIDE
     Indication: CEREBROVASCULAR ACCIDENT
     Dosage: 2 DF, 1/DAY
     Route: 065

REACTIONS (10)
  - Hepatic vascular thrombosis [Unknown]
  - Drug interaction [Unknown]
  - Decreased appetite [Not Recovered/Not Resolved]
  - Haemarthrosis [Not Recovered/Not Resolved]
  - Haematoma [Not Recovered/Not Resolved]
  - Drug monitoring procedure incorrectly performed [Unknown]
  - Poor quality sleep [Not Recovered/Not Resolved]
  - Haemorrhage [Unknown]
  - International normalised ratio increased [Unknown]
  - Back pain [Unknown]

NARRATIVE: CASE EVENT DATE: 2019
